FAERS Safety Report 7582914-7 (Version None)
Quarter: 2011Q2

REPORT INFORMATION
  Report Type: 
  Country: None (occurrence: None)
  Receive Date: 20110630
  Receipt Date: 20110629
  Transmission Date: 20111010
  Serious: Yes (Other)
  Sender: FDA-Public Use
  Company Number: US-PFIZER INC-2011145282

PATIENT
  Sex: Male

DRUGS (2)
  1. LIPITOR [Suspect]
     Dosage: 20 MG, UNK
     Route: 048
  2. LIPITOR [Suspect]
     Dosage: UNK
     Route: 048

REACTIONS (3)
  - DYSKINESIA [None]
  - RHABDOMYOLYSIS [None]
  - PAIN [None]
